FAERS Safety Report 6766819-7 (Version None)
Quarter: 2010Q2

REPORT INFORMATION
  Report Type: 
  Country: None (occurrence: None)
  Receive Date: 20100609
  Receipt Date: 20100524
  Transmission Date: 20101027
  Serious: Yes (Hospitalization, Other)
  Sender: FDA-Public Use
  Company Number: GB-ACCORD-005357

PATIENT
  Age: 76 Year
  Sex: Male

DRUGS (1)
  1. MITOMYCIN [Suspect]
     Indication: TRABECULECTOMY

REACTIONS (4)
  - CORNEAL EPITHELIUM DEFECT [None]
  - CORNEAL OEDEMA [None]
  - CORNEAL PERFORATION [None]
  - OFF LABEL USE [None]
